FAERS Safety Report 11544300 (Version 1)
Quarter: 2015Q3

REPORT INFORMATION
  Report Type: Spontaneous
  Country: US (occurrence: None)
  Receive Date: 20150923
  Receipt Date: 20150923
  Transmission Date: 20151125
  Serious: Yes (Life-Threatening, Hospitalization)
  Sender: FDA-Public Use
  Company Number: None

PATIENT
  Age: 60 Year
  Sex: Female

DRUGS (1)
  1. LITHIUM CARB CAP 300MG ROXANE [Suspect]
     Active Substance: LITHIUM CARBONATE
     Dosage: 100MG #2 CAPSULES BID WITH MEALS PO
     Route: 048

REACTIONS (1)
  - Toxicity to various agents [None]

NARRATIVE: CASE EVENT DATE: 20150618
